FAERS Safety Report 7377589-6 (Version None)
Quarter: 2011Q1

REPORT INFORMATION
  Report Type: 
  Country: None (occurrence: None)
  Receive Date: 20110328
  Receipt Date: 20110318
  Transmission Date: 20110831
  Serious: Yes (Other)
  Sender: FDA-Public Use
  Company Number: DE-US-EMD SERONO, INC.-7047904

PATIENT
  Sex: Female
  Weight: 75 kg

DRUGS (3)
  1. REBIF [Suspect]
     Dates: start: 20081201, end: 20090101
  2. REBIF [Suspect]
     Dates: start: 20090101
  3. REBIF [Suspect]
     Indication: MULTIPLE SCLEROSIS
     Route: 058
     Dates: start: 20051001

REACTIONS (3)
  - AUTOIMMUNE THYROIDITIS [None]
  - ARRHYTHMIA [None]
  - ANXIETY [None]
